FAERS Safety Report 5919001-7 (Version None)
Quarter: 2008Q3

REPORT INFORMATION
  Report Type: 
  Country: None (occurrence: None)
  Receive Date: 20080909
  Receipt Date: 20060726
  Transmission Date: 20090109
  Serious: Yes (Hospitalization)
  Sender: FDA-Public Use
  Company Number: 163-20785-06080028

PATIENT
  Age: 74 Year
  Sex: Female
  Weight: 57.6068 kg

DRUGS (2)
  1. THALOMID [Suspect]
     Indication: LUNG NEOPLASM MALIGNANT
  2. COUMADIN [Concomitant]

REACTIONS (4)
  - ATRIAL FIBRILLATION [None]
  - CONDITION AGGRAVATED [None]
  - HIP FRACTURE [None]
  - PNEUMONIA [None]
